FAERS Safety Report 10177039 (Version 1)
Quarter: 2014Q2

REPORT INFORMATION
  Report Type: Spontaneous
  Country: US (occurrence: None)
  Receive Date: 20140515
  Receipt Date: 20140515
  Transmission Date: 20141212
  Serious: Yes (Other)
  Sender: FDA-Public Use
  Company Number: None

PATIENT
  Age: 20 Year
  Sex: Male
  Weight: 99.79 kg

DRUGS (1)
  1. COPAXONE [Suspect]
     Dosage: 40, INJECTABLE SUBCUTANEOUS TIW
     Route: 058

REACTIONS (1)
  - Condition aggravated [None]
